FAERS Safety Report 6579301-7 (Version None)
Quarter: 2010Q1

REPORT INFORMATION
  Report Type: 
  Country: None (occurrence: None)
  Receive Date: 20100203
  Receipt Date: 20100125
  Transmission Date: 20100710
  Serious: Yes (Death)
  Sender: FDA-Public Use
  Company Number: PHO-2010-003

PATIENT
  Age: 76 Year
  Sex: Female

DRUGS (2)
  1. PHOTOFRIN [Suspect]
     Indication: LIP AND/OR ORAL CAVITY CANCER
     Dosage: 2 MG/KG BODY WEIGHT
     Dates: start: 20030519
  2. PHOTOFRIN [Suspect]
     Indication: TONGUE NEOPLASM MALIGNANT STAGE UNSPECIFIED
     Dosage: 2 MG/KG BODY WEIGHT
     Dates: start: 20030519

REACTIONS (1)
  - ACUTE RESPIRATORY FAILURE [None]
